FAERS Safety Report 13127184 (Version 1)
Quarter: 2017Q1

REPORT INFORMATION
  Report Type: Spontaneous
  Country: US (occurrence: US)
  Receive Date: 20170118
  Receipt Date: 20170118
  Transmission Date: 20170428
  Serious: No
  Sender: FDA-Public Use
  Company Number: US-ROCHE-1764358

PATIENT
  Sex: Female

DRUGS (2)
  1. RITUXAN [Suspect]
     Active Substance: RITUXIMAB
     Indication: SJOGREN^S SYNDROME
     Route: 065
     Dates: start: 2009
  2. FIORICET W CODEINE [Concomitant]
     Indication: MIGRAINE

REACTIONS (4)
  - Headache [Unknown]
  - Pain [Unknown]
  - Balance disorder [Unknown]
  - Off label use [Unknown]
